FAERS Safety Report 20428838 (Version 3)
Quarter: 2022Q3

REPORT INFORMATION
  Report Type: Spontaneous
  Country: US (occurrence: US)
  Receive Date: 20220204
  Receipt Date: 20220805
  Transmission Date: 20221027
  Serious: No
  Sender: FDA-Public Use
  Company Number: US-ALLERGAN-2202070US

PATIENT
  Sex: Male
  Weight: 81.633 kg

DRUGS (1)
  1. VUITY [Suspect]
     Active Substance: PILOCARPINE HYDROCHLORIDE
     Indication: Presbyopia
     Dosage: UNK UNK, QAM
     Route: 047
     Dates: start: 20220110, end: 20220130

REACTIONS (1)
  - Drug ineffective [Unknown]
